FAERS Safety Report 8814070 (Version 3)
Quarter: 2013Q1

REPORT INFORMATION
  Report Type: Spontaneous
  Country: JP (occurrence: JP)
  Receive Date: 20120925
  Receipt Date: 20130123
  Transmission Date: 20140127
  Serious: Yes (Other)
  Sender: FDA-Public Use
  Company Number: JP-20120047

PATIENT
  Age: 37 Year
  Sex: Female

DRUGS (2)
  1. LIPIODOL ULTRA FLUIDE (ETHIODIZED OIL) [Suspect]
     Indication: PRODUCT USED FOR UNKNOWN INDICATION
  2. BOSMIN [Suspect]

REACTIONS (2)
  - Anaphylactoid shock [None]
  - Acute pulmonary oedema [None]
